FAERS Safety Report 6940973-6 (Version None)
Quarter: 2010Q3

REPORT INFORMATION
  Report Type: 
  Country: None (occurrence: None)
  Receive Date: 20100825
  Receipt Date: 20100817
  Transmission Date: 20110219
  Serious: Yes (Hospitalization)
  Sender: FDA-Public Use
  Company Number: A0876357A

PATIENT
  Age: 62 Year
  Sex: Female

DRUGS (13)
  1. AVANDIA [Suspect]
     Indication: TYPE 2 DIABETES MELLITUS
     Dosage: 8MG PER DAY
     Route: 048
     Dates: start: 20040101
  2. GLUCOPHAGE [Concomitant]
  3. GLUCOTROL XL [Concomitant]
  4. COZAAR [Concomitant]
  5. ATENOLOL [Concomitant]
  6. FUROSEMIDE [Concomitant]
  7. HYDROCHLOROTHIAZIDE [Concomitant]
  8. POTASSIUM [Concomitant]
  9. ASPIRIN [Concomitant]
  10. CALCIUM [Concomitant]
  11. VITAMIN D3 [Concomitant]
  12. KLONOPIN [Concomitant]
  13. ALBUTEROL [Concomitant]

REACTIONS (2)
  - ASTHENIA [None]
  - PNEUMONIA [None]
